FAERS Safety Report 10424876 (Version 1)
Quarter: 2014Q3

REPORT INFORMATION
  Report Type: Not Available
  Country: SE (occurrence: SE)
  Receive Date: 20140902
  Receipt Date: 20140902
  Transmission Date: 20150326
  Serious: Yes (Hospitalization)
  Sender: FDA-Public Use
  Company Number: SE-MUNDIPHARMA DS AND PHARMACOVIGILANCE-GBR-2014-0020635

PATIENT
  Age: 96 Year
  Sex: Female

DRUGS (12)
  1. MIRTAZAPIN KRKA [Concomitant]
     Active Substance: MIRTAZAPINE
     Dosage: 15 MG, UNK
  2. BLOOD TRANSFUSION, AUXILIARY PRODUCTS [Concomitant]
     Active Substance: WHOLE BLOOD
  3. OXYNORM [Concomitant]
     Active Substance: OXYCODONE HYDROCHLORIDE
     Indication: ANALGESIC THERAPY
  4. ETALPHA [Concomitant]
     Active Substance: ALFACALCIDOL
     Dosage: 0.25 MG, UNK
  5. TENORMIN [Concomitant]
     Active Substance: ATENOLOL
     Dosage: 50 MG, UNK
  6. WARFARIN ORION [Concomitant]
     Dosage: UNK
  7. DOLCONTIN [Suspect]
     Active Substance: MORPHINE
     Indication: PRODUCT USED FOR UNKNOWN INDICATION
     Dosage: 5 MG, BID
     Route: 048
     Dates: start: 20140724, end: 20140724
  8. TOLTERODINE [Concomitant]
     Active Substance: TOLTERODINE
     Dosage: 2 MG, UNK
  9. NALOXONE [Concomitant]
     Active Substance: NALOXONE
  10. IMOVANE [Concomitant]
     Active Substance: ZOPICLONE
     Dosage: 7.5 MG, UNK
  11. ALVEDON [Concomitant]
     Active Substance: ACETAMINOPHEN
     Indication: ANALGESIC THERAPY
  12. SALURES [Concomitant]
     Active Substance: BENDROFLUMETHIAZIDE
     Dosage: 2.5 MG, UNK

REACTIONS (3)
  - Vomiting [Unknown]
  - Dehydration [Unknown]
  - Nausea [Unknown]

NARRATIVE: CASE EVENT DATE: 20140724
